FAERS Safety Report 9271775 (Version 2)
Quarter: 2013Q2

REPORT INFORMATION
  Report Type: Spontaneous
  Country: IT (occurrence: IT)
  Receive Date: 20130506
  Receipt Date: 20130524
  Transmission Date: 20140414
  Serious: Yes (Death, Other)
  Sender: FDA-Public Use
  Company Number: IT-BRISTOL-MYERS SQUIBB COMPANY-18848317

PATIENT
  Age: 73 Year
  Sex: Male

DRUGS (8)
  1. COUMADIN TABS 5 MG [Suspect]
     Indication: ATRIAL FIBRILLATION
     Route: 048
     Dates: start: 20100101, end: 20130409
  2. TELMISARTAN [Concomitant]
     Indication: HYPERTENSION
     Route: 048
  3. DOXAZOSIN [Concomitant]
     Indication: HYPERTENSION
  4. REPAGLINIDE [Concomitant]
     Indication: TYPE 2 DIABETES MELLITUS
  5. DARBEPOETIN ALFA [Concomitant]
     Indication: ANAEMIA
  6. FUROSEMIDE [Concomitant]
  7. SPIRONOLACTONE [Concomitant]
  8. DAFLON [Concomitant]
     Dosage: TABLETS.

REACTIONS (7)
  - Traumatic intracranial haemorrhage [Fatal]
  - Laceration [Unknown]
  - International normalised ratio abnormal [Unknown]
  - Skull fracture [Unknown]
  - Bradycardia [Unknown]
  - Loss of consciousness [Unknown]
  - Renal impairment [Unknown]
